FAERS Safety Report 6220344-0 (Version None)
Quarter: 2009Q2

REPORT INFORMATION
  Report Type: 
  Country: None (occurrence: None)
  Receive Date: 20090610
  Receipt Date: 20090529
  Transmission Date: 20091009
  Serious: Yes (Hospitalization)
  Sender: FDA-Public Use
  Company Number: DE-PFIZER INC-2008058150

PATIENT
  Age: 56 Year

DRUGS (2)
  1. SUNITINIB MALATE [Suspect]
     Indication: BREAST CANCER
     Dosage: 12.5 MG, UNK
     Route: 048
     Dates: start: 20080528
  2. DICLOFENAC SODIUM [Concomitant]
     Route: 048

REACTIONS (1)
  - MALLORY-WEISS SYNDROME [None]
